FAERS Safety Report 9181587 (Version 1)
Quarter: 2013Q1

REPORT INFORMATION
  Report Type: Spontaneous
  Country: FR (occurrence: FR)
  Receive Date: 20130322
  Receipt Date: 20130322
  Transmission Date: 20140127
  Serious: Yes (Hospitalization)
  Sender: FDA-Public Use
  Company Number: FR-BRISTOL-MYERS SQUIBB COMPANY-17475716

PATIENT
  Age: 73 Year
  Sex: Male
  Weight: 78 kg

DRUGS (3)
  1. HYDREA CAPS 500 MG [Suspect]
     Indication: POLYCYTHAEMIA
     Dosage: 1 DF: 2 CAPS
     Route: 048
     Dates: start: 2006, end: 20130218
  2. KARDEGIC [Concomitant]
     Dates: start: 2006
  3. DEPAKINE [Concomitant]
     Dates: start: 2006

REACTIONS (3)
  - Skin ulcer [Not Recovered/Not Resolved]
  - Erysipelas [Not Recovered/Not Resolved]
  - Osteitis [Not Recovered/Not Resolved]
